FAERS Safety Report 6286718-7 (Version None)
Quarter: 2009Q3

REPORT INFORMATION
  Report Type: 
  Country: None (occurrence: None)
  Receive Date: 20090716
  Receipt Date: 20080926
  Transmission Date: 20100115
  Serious: Yes (Other)
  Sender: FDA-Public Use
  Company Number: 128936

PATIENT
  Age: 34 Year
  Sex: Female
  Weight: 65.7716 kg

DRUGS (4)
  1. AVONEX [Suspect]
     Indication: MULTIPLE SCLEROSIS
     Dosage: 30 UG;QW;IM
     Route: 030
     Dates: start: 19960801, end: 20080907
  2. PREDNISONE [Concomitant]
  3. PENTOXIFYLLINE [Concomitant]
  4. PREV MEDS [Concomitant]

REACTIONS (3)
  - ABORTION SPONTANEOUS [None]
  - MENSTRUATION DELAYED [None]
  - MUSCLE SPASMS [None]
